FAERS Safety Report 4677424-0 (Version None)
Quarter: 2005Q2

REPORT INFORMATION
  Report Type: 
  Country: None (occurrence: None)
  Receive Date: 20050531
  Receipt Date: 20041129
  Transmission Date: 20051028
  Serious: Yes (Hospitalization)
  Sender: FDA-Public Use
  Company Number: AU-2004-BP-12400AU

PATIENT
  Sex: Female
  Weight: 67 kg

DRUGS (11)
  1. SPIRIVA [Suspect]
     Indication: CHRONIC OBSTRUCTIVE PULMONARY DISEASE
     Route: 055
     Dates: start: 20030701, end: 20040201
  2. ATROVENT [Suspect]
  3. VALPROATE SODIUM [Suspect]
  4. COGENTIN [Suspect]
     Route: 048
  5. KLIOGEST (NORETHISTERONE ACETATE, OESTRADIOL) [Concomitant]
  6. SOLIAN [Concomitant]
  7. EFFEXOR SR (VENFLAXINE XR) [Concomitant]
  8. VIOXX [Concomitant]
  9. DIAZEPAM [Concomitant]
  10. RABEPRAZOLE SODIUM [Concomitant]
  11. TOPIRAMATE [Concomitant]

REACTIONS (6)
  - BIPOLAR DISORDER [None]
  - CONFUSIONAL STATE [None]
  - DIZZINESS [None]
  - FALL [None]
  - GAIT DISTURBANCE [None]
  - MEMORY IMPAIRMENT [None]
